FAERS Safety Report 16063022 (Version 2)
Quarter: 2019Q2

REPORT INFORMATION
  Report Type: Spontaneous
  Country: US (occurrence: US)
  Receive Date: 20190312
  Receipt Date: 20190409
  Transmission Date: 20190711
  Serious: No
  Sender: FDA-Public Use
  Company Number: US-ASTRAZENECA-2019SE26694

PATIENT
  Age: 22593 Day
  Sex: Male
  Weight: 122.5 kg

DRUGS (4)
  1. ASMANEX [Concomitant]
     Active Substance: MOMETASONE FUROATE
     Indication: HYPERSENSITIVITY
     Route: 055
  2. CLARINEX DESLORATADINE [Concomitant]
     Indication: HYPERSENSITIVITY
     Route: 048
  3. TUDORZA [Suspect]
     Active Substance: ACLIDINIUM BROMIDE
     Indication: ASTHMA
     Route: 055
  4. TUDORZA [Suspect]
     Active Substance: ACLIDINIUM BROMIDE
     Indication: BRONCHITIS
     Route: 055

REACTIONS (4)
  - Off label use [Unknown]
  - Device malfunction [Unknown]
  - Product use in unapproved indication [Unknown]
  - Conjunctival hyperaemia [Unknown]

NARRATIVE: CASE EVENT DATE: 20190210
